FAERS Safety Report 24711257 (Version 1)
Quarter: 2024Q4

REPORT INFORMATION
  Report Type: Spontaneous
  Country: GB (occurrence: GB)
  Receive Date: 20241209
  Receipt Date: 20241209
  Transmission Date: 20250114
  Serious: Yes (Hospitalization)
  Sender: ACCORD
  Company Number: GB-Accord-458908

PATIENT
  Age: 70 Year
  Sex: Female
  Weight: 66 kg

DRUGS (5)
  1. ZOLEDRONIC ACID [Suspect]
     Active Substance: ZOLEDRONIC ACID
     Indication: Osteoporosis
     Dosage: INTRAVENOUS ZOLEDRONIC ACID 5 MG ANNUALLY FOR 3 YEARS FOLLOWED BY A 2-YEAR TREATMENT BREAK
     Route: 042
     Dates: start: 201706, end: 201906
  2. ROMOSOZUMAB [Suspect]
     Active Substance: ROMOSOZUMAB
     Indication: Osteoporosis
     Dates: start: 202106, end: 202206
  3. BECLOMETHASONE DIPROPIONATE [Concomitant]
     Active Substance: BECLOMETHASONE DIPROPIONATE
     Indication: Asthma
     Route: 055
  4. CALCIUM CARBONATE\VITAMIN D [Concomitant]
     Active Substance: CALCIUM CARBONATE\VITAMIN D
     Indication: Blood 25-hydroxycholecalciferol decreased
     Dosage: CALCIUM CARBONATE WITH COLECALCIFEROL 1,000 MG/800 UNITS
  5. ZOLEDRONIC ACID [Suspect]
     Active Substance: ZOLEDRONIC ACID
     Indication: Osteoporosis
     Route: 042
     Dates: start: 202208

REACTIONS (2)
  - Atypical femur fracture [Unknown]
  - Fall [Unknown]

NARRATIVE: CASE EVENT DATE: 20230501
